FAERS Safety Report 5823863-1 (Version None)
Quarter: 2008Q3

REPORT INFORMATION
  Report Type: 
  Country: None (occurrence: None)
  Receive Date: 20080725
  Receipt Date: 20080715
  Transmission Date: 20090109
  Serious: Yes (Other)
  Sender: FDA-Public Use
  Company Number: US-PFIZER INC-2008060779

PATIENT
  Age: 33 Year
  Sex: Male
  Weight: 97.727 kg

DRUGS (2)
  1. CHANTIX [Suspect]
     Indication: SMOKING CESSATION THERAPY
  2. LORAZEPAM [Concomitant]

REACTIONS (4)
  - AGGRESSION [None]
  - ALCOHOL ABUSE [None]
  - ANGER [None]
  - THINKING ABNORMAL [None]
